FAERS Safety Report 8043700-7 (Version None)
Quarter: 2012Q1

REPORT INFORMATION
  Report Type: 
  Country: None (occurrence: None)
  Receive Date: 20120112
  Receipt Date: 20101217
  Transmission Date: 20120608
  Serious: Yes (Other)
  Sender: FDA-Public Use
  Company Number: PHHY2010FI86678

PATIENT
  Age: 67 Year
  Sex: Female

DRUGS (3)
  1. TASIGNA [Suspect]
     Indication: CHRONIC MYELOID LEUKAEMIA
     Dosage: 400 MG, BID
     Dates: start: 20100301
  2. ANTIBIOTICS [Concomitant]
  3. CORTISONE ACETATE [Concomitant]

REACTIONS (4)
  - CONFUSIONAL STATE [None]
  - PLEURAL EFFUSION [None]
  - PYREXIA [None]
  - PLATELET COUNT DECREASED [None]
